FAERS Safety Report 12432575 (Version 1)
Quarter: 2016Q2

REPORT INFORMATION
  Report Type: Spontaneous
  Country: US (occurrence: US)
  Receive Date: 20160603
  Receipt Date: 20160603
  Transmission Date: 20160815
  Serious: No
  Sender: FDA-Public Use
  Company Number: US-ASTRAZENECA-2016SE39916

PATIENT
  Sex: Female
  Weight: 57.2 kg

DRUGS (1)
  1. RHINOCORT AQUA [Suspect]
     Active Substance: BUDESONIDE
     Indication: DRUG HYPERSENSITIVITY
     Route: 045

REACTIONS (3)
  - Dizziness [Unknown]
  - Palpitations [Unknown]
  - Multiple sclerosis [Unknown]
